FAERS Safety Report 5449787-X (Version None)
Quarter: 2007Q3

REPORT INFORMATION
  Report Type: 
  Country: None (occurrence: None)
  Receive Date: 20070910
  Receipt Date: 20070910
  Transmission Date: 20080115
  Serious: Yes (Hospitalization)
  Sender: FDA-Public Use
  Company Number: None

PATIENT
  Sex: Male
  Weight: 60 kg

DRUGS (8)
  1. ALIMTA [Suspect]
     Dosage: 825 MG
  2. CARBOPLATIN [Concomitant]
  3. CETUXIMAB [Concomitant]
  4. MULTI-VITAMIN [Concomitant]
  5. PEMETREXED [Concomitant]
  6. PERCOCET PRN BTP [Concomitant]
  7. MARINOL [Concomitant]
  8. MIRALAX [Concomitant]

REACTIONS (8)
  - CONDITION AGGRAVATED [None]
  - COUGH [None]
  - DYSPNOEA [None]
  - ERYTHEMA [None]
  - HYPOXIA [None]
  - INFUSION RELATED REACTION [None]
  - OXYGEN SATURATION DECREASED [None]
  - PARAESTHESIA [None]
